FAERS Safety Report 9386249 (Version 1)
Quarter: 2013Q3

REPORT INFORMATION
  Report Type: Spontaneous
  Country: GB (occurrence: GB)
  Receive Date: 20130708
  Receipt Date: 20130708
  Transmission Date: 20140515
  Serious: Yes (Other)
  Sender: FDA-Public Use
  Company Number: GB-ROCHE-1245516

PATIENT
  Age: 55 Year
  Sex: 0

DRUGS (7)
  1. RIBAVIRIN [Suspect]
     Indication: HEPATITIS C
     Route: 048
     Dates: start: 2008
  2. PEGINTERFERON ALFA-2B [Suspect]
     Indication: HEPATITIS C
     Route: 058
  3. TELAPREVIR [Suspect]
     Indication: HEPATITIS C
     Route: 048
  4. ARIPIPRAZOLE [Concomitant]
     Route: 065
  5. CITALOPRAM [Concomitant]
     Route: 065
  6. CLOZAPINE [Concomitant]
     Route: 065
  7. TOPIRAMATE [Concomitant]
     Route: 065

REACTIONS (3)
  - White blood cell count decreased [Unknown]
  - Haemoglobin decreased [Unknown]
  - Platelet count decreased [Unknown]
